FAERS Safety Report 22946702 (Version 2)
Quarter: 2023Q4

REPORT INFORMATION
  Report Type: Report from Study
  Country: US (occurrence: US)
  Receive Date: 20230915
  Receipt Date: 20231010
  Transmission Date: 20240110
  Serious: Yes (Other)
  Sender: FDA-Public Use
  Company Number: US-UCBSA-2023044907

PATIENT
  Sex: Female

DRUGS (1)
  1. LEVETIRACETAM [Suspect]
     Active Substance: LEVETIRACETAM
     Indication: Seizure
     Dosage: 500 MILLIGRAM, 2X/DAY (BID)
     Route: 048

REACTIONS (4)
  - Cataract [Recovered/Resolved]
  - Breast mass [Recovered/Resolved]
  - Cataract operation [Recovered/Resolved]
  - Breast conserving surgery [Recovered/Resolved]

NARRATIVE: CASE EVENT DATE: 19900101
